FAERS Safety Report 8075310-X (Version None)
Quarter: 2012Q1

REPORT INFORMATION
  Report Type: 
  Country: None (occurrence: None)
  Receive Date: 20120120
  Receipt Date: 20120113
  Transmission Date: 20120608
  Serious: Yes (Hospitalization, Other)
  Sender: FDA-Public Use
  Company Number: ACO_20981_2010

PATIENT
  Age: 39 Year
  Sex: Female

DRUGS (15)
  1. DETROL LA [Concomitant]
  2. OMEPRAZOLE [Concomitant]
  3. CHROMAGEN FA (ASCORBIC ACID, CYANOCOBALAMIN, FERROUS FUMARATE, FOLIC A [Concomitant]
  4. FLORINEF [Concomitant]
  5. COPAXONE [Concomitant]
  6. DOMPERIDONE (DOMPERIDONE) [Concomitant]
  7. CENTRUM/01536001/ASCORBIC ACID, BETACAROTENE, COLECALCIFEROL, FOLIC AC [Concomitant]
  8. ERGOCALCIFEROL [Concomitant]
  9. FOLIC ACID [Concomitant]
  10. LYRICA [Concomitant]
  11. AMPYRA [Suspect]
     Indication: GAIT DISTURBANCE
     Dosage: 10 MG, BID, ORAL
     Route: 048
     Dates: start: 20100825, end: 20101208
  12. BACLOFEN [Concomitant]
  13. CALCIUM CARBONATE [Concomitant]
  14. PROVIGIL [Concomitant]
  15. VITAMIN C/00008001/ (ASCORBIC ACID) [Concomitant]

REACTIONS (12)
  - FALL [None]
  - ASTHENIA [None]
  - CONVULSION [None]
  - URINARY TRACT INFECTION [None]
  - HYPOAESTHESIA [None]
  - SYNCOPE [None]
  - DIZZINESS [None]
  - LOSS OF CONSCIOUSNESS [None]
  - FATIGUE [None]
  - HYPOTENSION [None]
  - ORTHOSTATIC HYPOTENSION [None]
  - FOOT FRACTURE [None]
